FAERS Safety Report 13307341 (Version 1)
Quarter: 2017Q1

REPORT INFORMATION
  Report Type: Spontaneous
  Country: US (occurrence: US)
  Receive Date: 20170308
  Receipt Date: 20170308
  Transmission Date: 20170428
  Serious: No
  Sender: FDA-Public Use
  Company Number: US-PERRIGO-16US000648

PATIENT
  Age: 31 Year
  Sex: Male
  Weight: 77.98 kg

DRUGS (3)
  1. NAPROXEN SODIUM. [Suspect]
     Active Substance: NAPROXEN SODIUM
     Indication: INFLAMMATION
     Dosage: 440 MG, SINGLE
     Route: 048
     Dates: start: 20160121, end: 20160121
  2. TYLENOL COLD+COUGH (ACETAMINOPHEN\CHLORPHENIRAMINE\DEXTROMETHORPHAN\PSEUDOEPHEDRINE) [Suspect]
     Active Substance: ACETAMINOPHEN\CHLORPHENIRAMINE\DEXTROMETHORPHAN\PSEUDOEPHEDRINE
     Indication: NASOPHARYNGITIS
     Dosage: UNKNOWN, SINGLE
     Route: 048
     Dates: start: 20160121, end: 20160121
  3. NAPROXEN SODIUM. [Suspect]
     Active Substance: NAPROXEN SODIUM
     Indication: NASOPHARYNGITIS

REACTIONS (2)
  - Headache [Recovering/Resolving]
  - Off label use [Recovered/Resolved]

NARRATIVE: CASE EVENT DATE: 20160121
